FAERS Safety Report 25148459 (Version 3)
Quarter: 2025Q2

REPORT INFORMATION
  Report Type: Spontaneous
  Country: ES (occurrence: ES)
  Receive Date: 20250402
  Receipt Date: 20250526
  Transmission Date: 20250716
  Serious: Yes (Hospitalization, Other)
  Sender: GENMAB
  Company Number: ES-ABBVIE-6201699

PATIENT
  Age: 79 Year
  Sex: Male
  Weight: 78 kg

DRUGS (9)
  1. EPCORITAMAB [Suspect]
     Active Substance: EPCORITAMAB
     Indication: Diffuse large B-cell lymphoma
     Dosage: 48 MILLIGRAM WEEKLY
     Route: 058
     Dates: start: 20250203
  2. OMEPRAZOLE [Concomitant]
     Active Substance: OMEPRAZOLE
     Indication: Prophylaxis
     Dosage: 20 MILLIGRAM QD
     Route: 048
     Dates: start: 20230201
  3. ATOVACUONA [Concomitant]
     Indication: Antifungal prophylaxis
     Dosage: 5 MILLILITER, Q12H
     Route: 048
     Dates: start: 20231102
  4. MONTELUKAST [Concomitant]
     Active Substance: MONTELUKAST
     Indication: Antiallergic therapy
     Route: 048
     Dates: start: 20250218
  5. ACYCLOVIR [Concomitant]
     Active Substance: ACYCLOVIR
     Indication: Antiviral prophylaxis
     Dosage: 800 MILLIGRAM QD
     Route: 048
     Dates: start: 20230201
  6. CALCIUM CARBONATE\CHOLECALCIFEROL [Concomitant]
     Active Substance: CALCIUM CARBONATE\CHOLECALCIFEROL
     Indication: Osteoporotic fracture
     Route: 065
     Dates: start: 20230503
  7. PROLIA [Concomitant]
     Active Substance: DENOSUMAB
     Indication: Osteoporotic fracture
     Route: 065
     Dates: start: 20230503
  8. LEVOTHYROXINE [Concomitant]
     Active Substance: LEVOTHYROXINE
     Indication: Hypothyroidism
     Dosage: 50 MICROGRAM QD (1 TABLET A DAY)
     Route: 065
     Dates: start: 20200101
  9. PREDNISONE [Concomitant]
     Active Substance: PREDNISONE
     Indication: Idiopathic histaminergic angioedema
     Route: 065
     Dates: start: 20250218

REACTIONS (16)
  - Arrhythmia supraventricular [Unknown]
  - Ventricular arrhythmia [Unknown]
  - Cardiac arrest [Unknown]
  - Haemodynamic instability [Unknown]
  - Loss of consciousness [Unknown]
  - Atrioventricular block [Unknown]
  - Cardio-respiratory arrest [Unknown]
  - Myopathy [Unknown]
  - Hypotension [Unknown]
  - Angioedema [Unknown]
  - Malaise [Unknown]
  - Respiratory distress [Unknown]
  - Dizziness [Unknown]
  - Asthenia [Unknown]
  - Asthenia [Unknown]
  - Dyspnoea [Unknown]

NARRATIVE: CASE EVENT DATE: 20250101
